FAERS Safety Report 5875124-2 (Version None)
Quarter: 2008Q3

REPORT INFORMATION
  Report Type: 
  Country: None (occurrence: None)
  Receive Date: 20080909
  Receipt Date: 20080904
  Transmission Date: 20090109
  Serious: Yes (Death)
  Sender: FDA-Public Use
  Company Number: B0533988A

PATIENT
  Age: 80 Year
  Sex: Male
  Weight: 83 kg

DRUGS (3)
  1. TYVERB [Suspect]
     Dosage: 1250MG PER DAY
     Route: 048
     Dates: start: 20080612, end: 20080702
  2. XELODA [Suspect]
     Dosage: 4000MG PER DAY
     Route: 065
     Dates: start: 20080612, end: 20080625
  3. DURAGESIC-100 [Concomitant]
     Indication: PAIN
     Route: 042

REACTIONS (2)
  - CARDIAC DISORDER [None]
  - CHEST PAIN [None]
